FAERS Safety Report 5230142-2 (Version None)
Quarter: 2007Q1

REPORT INFORMATION
  Report Type: 
  Country: None (occurrence: None)
  Receive Date: 20070206
  Receipt Date: 20060829
  Transmission Date: 20070707
  Serious: No
  Sender: FDA-Public Use
  Company Number: US-GLAXOSMITHKLINE-A0617114A

PATIENT
  Age: 49 Year
  Sex: Male

DRUGS (4)
  1. PAXIL CR [Suspect]
     Dosage: 25MG PER DAY
     Route: 048
     Dates: start: 20060701, end: 20060701
  2. LISINOPRIL [Concomitant]
  3. POTASSIUM ACETATE [Concomitant]
  4. PIROXICAM [Concomitant]

REACTIONS (4)
  - DEHYDRATION [None]
  - DIARRHOEA [None]
  - ILL-DEFINED DISORDER [None]
  - NERVOUSNESS [None]
